FAERS Safety Report 8072178-2 (Version None)
Quarter: 2012Q1

REPORT INFORMATION
  Report Type: 
  Country: None (occurrence: None)
  Receive Date: 20120126
  Receipt Date: 20120119
  Transmission Date: 20120608
  Serious: No
  Sender: FDA-Public Use
  Company Number: US-PFIZER INC-2011291550

PATIENT
  Sex: Male
  Weight: 98.866 kg

DRUGS (4)
  1. ARTHROTEC [Suspect]
     Dosage: 75, 1 AFTER DINNER
     Dates: start: 20111211
  2. ARTHROTEC [Suspect]
     Indication: OSTEOARTHRITIS
     Dosage: UNK
     Route: 048
     Dates: start: 20111117, end: 20111101
  3. ARTHROTEC [Suspect]
     Dosage: 75, 1 AFTER DINNER
     Dates: start: 20111208
  4. METFORMIN [Concomitant]
     Indication: TYPE 2 DIABETES MELLITUS
     Dosage: 500 MG, 2X/DAY

REACTIONS (5)
  - EYE MOVEMENT DISORDER [None]
  - ASTHENIA [None]
  - HYPOGLYCAEMIA [None]
  - HYPERHIDROSIS [None]
  - HEAD DISCOMFORT [None]
